FAERS Safety Report 4754937-4 (Version None)
Quarter: 2005Q3

REPORT INFORMATION
  Report Type: 
  Country: None (occurrence: None)
  Receive Date: 20050829
  Receipt Date: 20050621
  Transmission Date: 20060218
  Serious: Yes (Hospitalization, Disabling)
  Sender: FDA-Public Use
  Company Number: US-ROCHE-408632

PATIENT
  Sex: Male
  Weight: 79.4 kg

DRUGS (5)
  1. ACCUTANE [Suspect]
     Indication: ACNE
     Route: 048
     Dates: start: 19840615, end: 19850615
  2. ACCUTANE [Suspect]
     Route: 048
     Dates: start: 19940615, end: 19940915
  3. ACCUTANE [Suspect]
     Route: 048
     Dates: start: 19970519
  4. ACCUTANE [Suspect]
     Route: 048
     Dates: start: 19970722
  5. IBUPROFEN [Concomitant]
     Dosage: TAKEN WEEKLY OVER THE LAST TEN YEARS.

REACTIONS (44)
  - ALANINE AMINOTRANSFERASE INCREASED [None]
  - ANHEDONIA [None]
  - ANXIETY [None]
  - APHTHOUS STOMATITIS [None]
  - ATELECTASIS [None]
  - BLOOD ALBUMIN DECREASED [None]
  - BLOOD CALCIUM DECREASED [None]
  - BLOOD PRESSURE DECREASED [None]
  - BLOOD UREA INCREASED [None]
  - CARDIAC MURMUR [None]
  - CHEILITIS [None]
  - CHEST X-RAY ABNORMAL [None]
  - COLITIS [None]
  - COLITIS ULCERATIVE [None]
  - CROHN'S DISEASE [None]
  - DIZZINESS [None]
  - DRY SKIN [None]
  - FATIGUE [None]
  - GASTROINTESTINAL DISORDER [None]
  - GASTROINTESTINAL HAEMORRHAGE [None]
  - HEADACHE [None]
  - HEART RATE INCREASED [None]
  - HERPES VIRUS INFECTION [None]
  - HYPERGLYCAEMIA [None]
  - ILEUS [None]
  - INFLAMMATORY BOWEL DISEASE [None]
  - INFLUENZA LIKE ILLNESS [None]
  - INTERVERTEBRAL DISC DISORDER [None]
  - IRRITABLE BOWEL SYNDROME [None]
  - NEPHROLITHIASIS [None]
  - PAIN [None]
  - PCO2 INCREASED [None]
  - PHARYNGITIS [None]
  - PHARYNGOLARYNGEAL PAIN [None]
  - PLEURAL EFFUSION [None]
  - POLYARTHRITIS [None]
  - PROCTITIS [None]
  - RECTAL HAEMORRHAGE [None]
  - RENAL CYST [None]
  - RETROPERITONEAL OEDEMA [None]
  - SKIN FISSURES [None]
  - SPINAL COLUMN STENOSIS [None]
  - UPPER RESPIRATORY TRACT INFECTION [None]
  - VIRAL INFECTION [None]
